FAERS Safety Report 19430870 (Version 1)
Quarter: 2021Q2

REPORT INFORMATION
  Report Type: Spontaneous
  Country: US (occurrence: US)
  Receive Date: 20210618
  Receipt Date: 20210618
  Transmission Date: 20210717
  Serious: No
  Sender: FDA-Public Use
  Company Number: US-ROCHE-2803117

PATIENT
  Sex: Female

DRUGS (11)
  1. VITAMIN C [Concomitant]
     Active Substance: ASCORBIC ACID
     Route: 048
  2. VITAMIN D [Concomitant]
     Active Substance: VITAMIN D NOS
     Route: 048
  3. ACTEMRA [Suspect]
     Active Substance: TOCILIZUMAB
     Indication: RHEUMATOID ARTHRITIS
     Route: 058
  4. MELOXICAM. [Concomitant]
     Active Substance: MELOXICAM
     Route: 048
  5. CENTRUM [Concomitant]
     Active Substance: VITAMINS
     Route: 048
  6. LOSARTAN POTASSIUM. [Concomitant]
     Active Substance: LOSARTAN POTASSIUM
     Route: 048
  7. METHOCARBAMOL. [Concomitant]
     Active Substance: METHOCARBAMOL
     Route: 048
  8. ALENDRONATE [Concomitant]
     Active Substance: ALENDRONATE SODIUM
     Route: 048
  9. ACTEMRA [Suspect]
     Active Substance: TOCILIZUMAB
  10. FOLIC ACID. [Concomitant]
     Active Substance: FOLIC ACID
     Route: 048
  11. FAMOTIDINE. [Concomitant]
     Active Substance: FAMOTIDINE
     Route: 048

REACTIONS (3)
  - Pain [Not Recovered/Not Resolved]
  - Vitamin D decreased [Not Recovered/Not Resolved]
  - Fall [Not Recovered/Not Resolved]
